FAERS Safety Report 13347832 (Version 2)
Quarter: 2017Q2

REPORT INFORMATION
  Report Type: Spontaneous
  Country: IN (occurrence: IN)
  Receive Date: 20170317
  Receipt Date: 20170403
  Transmission Date: 20170830
  Serious: Yes (Other)
  Sender: FDA-Public Use
  Company Number: IN-ABBVIE-17P-078-1909804-00

PATIENT
  Age: 39 Year
  Sex: Male

DRUGS (1)
  1. VALPARIN CHRONO [Suspect]
     Active Substance: VALPROIC ACID
     Indication: PRODUCT USED FOR UNKNOWN INDICATION
     Dosage: TABLET, EXTENDED RELEASE
     Route: 048
     Dates: end: 20161226

REACTIONS (2)
  - Seizure [Recovering/Resolving]
  - Medication residue present [Unknown]

NARRATIVE: CASE EVENT DATE: 20161225
